FAERS Safety Report 19199921 (Version 2)
Quarter: 2021Q3

REPORT INFORMATION
  Report Type: Spontaneous
  Country: FR (occurrence: FR)
  Receive Date: 20210430
  Receipt Date: 20210930
  Transmission Date: 20211014
  Serious: Yes (Hospitalization)
  Sender: FDA-Public Use
  Company Number: FR-TEVA-2021-FR-1905875

PATIENT
  Age: 62 Year
  Sex: Female
  Weight: 56 kg

DRUGS (2)
  1. MODERNA COVID?19 VACCINE [Suspect]
     Active Substance: CX-024414
     Indication: COVID-19 IMMUNISATION
     Dosage: 1 DF
     Route: 030
     Dates: start: 20210310, end: 20210310
  2. PAROXETINE. [Suspect]
     Active Substance: PAROXETINE
     Indication: DEPRESSION
     Dosage: 20 MG
     Route: 048
     Dates: start: 20210325, end: 20210416

REACTIONS (1)
  - Cold type haemolytic anaemia [Recovered/Resolved]

NARRATIVE: CASE EVENT DATE: 20210412
